FAERS Safety Report 4348078-8 (Version None)
Quarter: 2004Q2

REPORT INFORMATION
  Report Type: 
  Country: None (occurrence: None)
  Receive Date: 20040422
  Receipt Date: 20040402
  Transmission Date: 20050107
  Serious: Yes (Other)
  Sender: FDA-Public Use
  Company Number: USA030740696

PATIENT
  Age: 55 Year
  Sex: Female

DRUGS (6)
  1. FORTEO [Suspect]
     Dates: start: 20030612
  2. ACTOS (PIOGLITAZONE) [Concomitant]
  3. GLUCOPHAGE [Concomitant]
  4. PRANDIN (PRANDIN) [Concomitant]
  5. HYPERTENSION MED [Concomitant]
  6. LIPITOR [Concomitant]

REACTIONS (8)
  - BONE PAIN [None]
  - FATIGUE [None]
  - FLUSHING [None]
  - INJECTION SITE HAEMORRHAGE [None]
  - LOWER LIMB FRACTURE [None]
  - NAUSEA [None]
  - PYREXIA [None]
  - RASH [None]
